FAERS Safety Report 24869827 (Version 1)
Quarter: 2025Q1

REPORT INFORMATION
  Report Type: Spontaneous
  Country: US (occurrence: None)
  Receive Date: 20250120
  Receipt Date: 20250120
  Transmission Date: 20250408
  Serious: Yes (Disabling)
  Sender: FDA-CTU
  Company Number: None

PATIENT
  Age: 47 Year
  Sex: Female
  Weight: 113.85 kg

DRUGS (4)
  1. OLMESARTAN [Suspect]
     Active Substance: OLMESARTAN
     Indication: Hypertension
     Dosage: OTHER QUANTITY : 30 CAPSULE(S);?FREQUENCY : DAILY;?
     Route: 048
     Dates: start: 20241125, end: 20250107
  2. ESTRADIOL [Concomitant]
     Active Substance: ESTRADIOL
  3. LEVOTHYROXINE SODIUM [Concomitant]
     Active Substance: LEVOTHYROXINE SODIUM
  4. Multivitamin-rainbow naturals [Concomitant]

REACTIONS (4)
  - Diarrhoea [None]
  - Abdominal pain upper [None]
  - Gait disturbance [None]
  - Frequent bowel movements [None]

NARRATIVE: CASE EVENT DATE: 20250102
